FAERS Safety Report 4996782-0 (Version None)
Quarter: 2006Q2

REPORT INFORMATION
  Report Type: 
  Country: None (occurrence: None)
  Receive Date: 20060509
  Receipt Date: 20050913
  Transmission Date: 20061013
  Serious: Yes (Hospitalization)
  Sender: FDA-Public Use
  Company Number: US-MERCK-0509USA01825

PATIENT
  Age: 39 Year
  Sex: Male
  Weight: 89 kg

DRUGS (2)
  1. VIOXX [Suspect]
     Indication: ARTHRITIS
     Route: 048
     Dates: start: 20011201, end: 20020801
  2. VIOXX [Suspect]
     Indication: SPONDYLITIS
     Route: 048
     Dates: start: 20011201, end: 20020801

REACTIONS (15)
  - ABDOMINAL PAIN [None]
  - ANXIETY DISORDER [None]
  - BACK PAIN [None]
  - CAUSTIC INJURY [None]
  - COUGH [None]
  - FLAT AFFECT [None]
  - HYPOAESTHESIA [None]
  - JOINT INJURY [None]
  - PANIC ATTACK [None]
  - PANIC DISORDER [None]
  - RASH [None]
  - THERMAL BURN [None]
  - THROMBOSIS [None]
  - TRANSIENT ISCHAEMIC ATTACK [None]
  - WOUND INFECTION [None]
